FAERS Safety Report 23072211 (Version 2)
Quarter: 2023Q4

REPORT INFORMATION
  Report Type: Spontaneous
  Country: CN (occurrence: CN)
  Receive Date: 20231017
  Receipt Date: 20231113
  Transmission Date: 20240110
  Serious: Yes (Hospitalization)
  Sender: FDA-Public Use
  Company Number: CN-NOVOPROD-1125387

PATIENT
  Age: 82 Year
  Sex: Male

DRUGS (3)
  1. INSULIN ASPART [Suspect]
     Active Substance: INSULIN ASPART
     Indication: Diabetes mellitus
     Dosage: 32 IU, QD(17 U MORNING AND 15 U EVENING
  2. INSULIN ASPART [Suspect]
     Active Substance: INSULIN ASPART
     Dosage: 42 IU, QD(18 U MORNING 8 U NOON AND 16 U EVENING18 )
  3. INSULIN ASPART [Suspect]
     Active Substance: INSULIN ASPART
     Indication: Diabetes mellitus
     Dosage: UNK

REACTIONS (4)
  - Haematochezia [Unknown]
  - Diabetes mellitus inadequate control [Unknown]
  - Product packaging quantity issue [Unknown]
  - Wrong technique in product usage process [Unknown]

NARRATIVE: CASE EVENT DATE: 20231002
